FAERS Safety Report 17094628 (Version 1)
Quarter: 2019Q4

REPORT INFORMATION
  Report Type: Spontaneous
  Country: US (occurrence: US)
  Receive Date: 20191130
  Receipt Date: 20191130
  Transmission Date: 20200122
  Serious: Yes (Death)
  Sender: FDA-Public Use
  Company Number: US-ROCHE-2375204

PATIENT
  Sex: Male

DRUGS (1)
  1. ZELBORAF [Suspect]
     Active Substance: VEMURAFENIB
     Indication: COLON CANCER
     Route: 048
     Dates: start: 20190807

REACTIONS (3)
  - Intentional product use issue [Unknown]
  - Death [Fatal]
  - Off label use [Unknown]
